FAERS Safety Report 8591643-2 (Version None)
Quarter: 2012Q3

REPORT INFORMATION
  Report Type: 
  Country: None (occurrence: None)
  Receive Date: 20120814
  Receipt Date: 20120806
  Transmission Date: 20120928
  Serious: Yes (Other)
  Sender: FDA-Public Use
  Company Number: US-JNJFOC-20120802796

PATIENT
  Sex: Male
  Weight: 124.74 kg

DRUGS (8)
  1. BYSTOLIC [Interacting]
     Indication: BLOOD PRESSURE
     Route: 065
     Dates: end: 20120101
  2. ULTRAM [Suspect]
     Indication: PRODUCT USED FOR UNKNOWN INDICATION
     Route: 048
  3. TRAMADOL HCL [Suspect]
     Indication: PRODUCT USED FOR UNKNOWN INDICATION
     Dosage: ONCE DAILY
     Route: 048
  4. TRAMADOL HCL [Suspect]
     Dosage: ONCE DAILY
     Route: 048
  5. EPHEDRINE [Suspect]
     Indication: ANTASTHMATIC DRUG LEVEL
     Route: 065
  6. LOSARTAN POTASSIUM [Suspect]
     Indication: PRODUCT USED FOR UNKNOWN INDICATION
     Route: 065
  7. TRAMADOL HCL [Suspect]
     Route: 048
  8. THEOPHYLLINE [Interacting]
     Indication: PRODUCT USED FOR UNKNOWN INDICATION
     Route: 065
     Dates: end: 20120101

REACTIONS (10)
  - DEREALISATION [None]
  - DRUG INTERACTION [None]
  - LOSS OF CONSCIOUSNESS [None]
  - ACTIVITIES OF DAILY LIVING IMPAIRED [None]
  - DRUG EFFECT DECREASED [None]
  - TREATMENT NONCOMPLIANCE [None]
  - HEADACHE [None]
  - ABNORMAL BEHAVIOUR [None]
  - ADVERSE EVENT [None]
  - FEELING ABNORMAL [None]
